FAERS Safety Report 20737746 (Version 3)
Quarter: 2022Q3

REPORT INFORMATION
  Report Type: Spontaneous
  Country: US (occurrence: US)
  Receive Date: 20220422
  Receipt Date: 20220720
  Transmission Date: 20221027
  Serious: Yes (Hospitalization, Other)
  Sender: FDA-Public Use
  Company Number: US-BRISTOL-MYERS SQUIBB COMPANY-2022-021640

PATIENT
  Age: 57 Year
  Sex: Male

DRUGS (20)
  1. ROMIDEPSIN [Suspect]
     Active Substance: ROMIDEPSIN
     Indication: Allogenic stem cell transplantation
     Dosage: 4 DOSES
     Route: 041
     Dates: start: 20220223, end: 20220226
  2. TACROLIMUS [Suspect]
     Active Substance: TACROLIMUS
     Indication: Graft versus host disease
     Dosage: EVERY 12 HRS
     Route: 065
     Dates: start: 20220227, end: 20220317
  3. METHOTREXATE [Concomitant]
     Active Substance: METHOTREXATE
     Indication: Product used for unknown indication
  4. ACYCLOVIR [Concomitant]
     Active Substance: ACYCLOVIR
     Indication: Viral infection
     Dates: start: 20220222, end: 20220607
  5. LETERMOVIR [Concomitant]
     Active Substance: LETERMOVIR
     Indication: Viral infection
  6. FLUCONAZOLE [Concomitant]
     Active Substance: FLUCONAZOLE
     Indication: Viral infection
     Dosage: HELD DURING AKI AND RESTARTED
     Dates: start: 20220228, end: 20220318
  7. FLUCONAZOLE [Concomitant]
     Active Substance: FLUCONAZOLE
     Dates: start: 20220405, end: 20220513
  8. DAPSONE [Concomitant]
     Active Substance: DAPSONE
     Indication: Prophylaxis
     Route: 048
     Dates: start: 20220308, end: 20220513
  9. CASPOFUNGINA [CASPOFUNGIN] [Concomitant]
     Indication: Prophylaxis
     Route: 042
     Dates: start: 20220319, end: 20220321
  10. LEVOFLOXACIN [Concomitant]
     Active Substance: LEVOFLOXACIN
     Indication: Prophylaxis
     Dates: start: 20220302, end: 20220317
  11. LEVOFLOXACIN [Concomitant]
     Active Substance: LEVOFLOXACIN
     Route: 048
     Dates: start: 20220328, end: 20220407
  12. FUROSEMIDE [Concomitant]
     Active Substance: FUROSEMIDE
     Indication: Product used for unknown indication
     Route: 042
     Dates: start: 20220328, end: 20220403
  13. FUROSEMIDE [Concomitant]
     Active Substance: FUROSEMIDE
     Route: 042
     Dates: start: 20220402, end: 20220404
  14. FUROSEMIDE [Concomitant]
     Active Substance: FUROSEMIDE
     Route: 042
     Dates: start: 20220405, end: 20220405
  15. TORSEMIDE [Concomitant]
     Active Substance: TORSEMIDE
     Route: 048
     Dates: start: 20210405, end: 20210405
  16. TORSEMIDE [Concomitant]
     Active Substance: TORSEMIDE
     Route: 048
     Dates: start: 20220405, end: 20220405
  17. VALSARTAN/SANDOZ [Concomitant]
     Indication: Product used for unknown indication
     Dosage: 49-51 MG 2 TIMES DAILY
     Route: 048
     Dates: start: 20220222, end: 20220318
  18. PROCHLORPERAZINE [PROCHLORPERAZINE MESILATE] [Concomitant]
     Indication: Prophylaxis
     Dosage: PRN
     Route: 048
     Dates: start: 20220222, end: 20220407
  19. TRAZODONE [Concomitant]
     Active Substance: TRAZODONE HYDROCHLORIDE
     Dosage: PRN BEDTIME
     Route: 048
     Dates: start: 20220308, end: 20220407
  20. FARXIGA [Concomitant]
     Active Substance: DAPAGLIFLOZIN PROPANEDIOL
     Indication: Type 2 diabetes mellitus
     Route: 048
     Dates: start: 20211118, end: 20220318

REACTIONS (3)
  - Cardiac failure [Recovered/Resolved]
  - Intentional product use issue [Unknown]
  - Acute kidney injury [Recovered/Resolved]

NARRATIVE: CASE EVENT DATE: 20220328
